FAERS Safety Report 6016416-6 (Version None)
Quarter: 2008Q4

REPORT INFORMATION
  Report Type: 
  Country: None (occurrence: None)
  Receive Date: 20081222
  Receipt Date: 20081210
  Transmission Date: 20090506
  Serious: Yes (Death)
  Sender: FDA-Public Use
  Company Number: JP-SANOFI-SYNTHELABO-A01200814350

PATIENT
  Sex: Male
  Weight: 75 kg

DRUGS (4)
  1. FLUOROURACIL [Concomitant]
     Indication: RECTAL CANCER
     Dosage: UNK
     Route: 042
     Dates: start: 20081023, end: 20081023
  2. ELPLAT [Suspect]
     Indication: RECTAL CANCER
     Route: 041
     Dates: start: 20081106, end: 20081106
  3. LEUCOVORIN CALCIUM [Concomitant]
     Indication: RECTAL CANCER
     Dosage: UNK
     Route: 041
     Dates: start: 20081106, end: 20081106
  4. BEVACIZUMAB [Suspect]
     Dosage: 150 MG
     Route: 065
     Dates: start: 20081106, end: 20081106

REACTIONS (1)
  - CARDIO-RESPIRATORY ARREST [None]
